FAERS Safety Report 22637545 (Version 1)
Quarter: 2023Q2

REPORT INFORMATION
  Report Type: Spontaneous
  Country: CN (occurrence: CN)
  Receive Date: 20230626
  Receipt Date: 20230626
  Transmission Date: 20230722
  Serious: Yes (Disabling, Other)
  Sender: FDA-Public Use
  Company Number: CN-ORGANON-O2306CHN002533

PATIENT
  Age: 65 Year
  Sex: Female
  Weight: 60 kg

DRUGS (3)
  1. REMERON [Suspect]
     Active Substance: MIRTAZAPINE
     Indication: Anxiety disorder
     Dosage: 15MG, QD, EVERY NIGHT
     Route: 048
     Dates: start: 20230507, end: 20230531
  2. REMERON [Suspect]
     Active Substance: MIRTAZAPINE
     Dosage: 22.5MG, QD
     Route: 048
     Dates: start: 20230601, end: 20230601
  3. VENLAFAXINE HCL [Suspect]
     Active Substance: VENLAFAXINE HYDROCHLORIDE
     Indication: Anxiety disorder
     Dosage: 75MG, QD
     Route: 048
     Dates: start: 20230601, end: 20230601

REACTIONS (4)
  - Hepatic enzyme increased [Recovering/Resolving]
  - Drug-induced liver injury [Unknown]
  - Product use in unapproved indication [Unknown]
  - Product prescribing issue [Unknown]

NARRATIVE: CASE EVENT DATE: 20230101
